FAERS Safety Report 18764847 (Version 2)
Quarter: 2021Q1

REPORT INFORMATION
  Report Type: Spontaneous
  Country: US (occurrence: US)
  Receive Date: 20210120
  Receipt Date: 20210208
  Transmission Date: 20210419
  Serious: Yes (Other)
  Sender: FDA-Public Use
  Company Number: US-ALLERGAN-2048228US

PATIENT
  Sex: Female

DRUGS (3)
  1. OZURDEX [Suspect]
     Active Substance: DEXAMETHASONE
     Indication: UVEITIS
     Dosage: 0.7 MG, SINGLE
     Route: 031
     Dates: start: 20200904, end: 20200904
  2. TIMOLOL. [Concomitant]
     Active Substance: TIMOLOL
  3. LUMIGAN [Concomitant]
     Active Substance: BIMATOPROST

REACTIONS (6)
  - Retinal detachment [Unknown]
  - Cystoid macular oedema [Not Recovered/Not Resolved]
  - Blindness [Not Recovered/Not Resolved]
  - Intraocular pressure decreased [Recovering/Resolving]
  - Hypotony of eye [Unknown]
  - Eye haemorrhage [Unknown]

NARRATIVE: CASE EVENT DATE: 20201014
